FAERS Safety Report 5839095-7 (Version None)
Quarter: 2008Q3

REPORT INFORMATION
  Report Type: 
  Country: None (occurrence: None)
  Receive Date: 20080808
  Receipt Date: 20080728
  Transmission Date: 20090109
  Serious: Yes (Hospitalization)
  Sender: FDA-Public Use
  Company Number: FR-PFIZER INC-2007093302

PATIENT
  Sex: Male
  Weight: 92 kg

DRUGS (21)
  1. CHANTIX [Suspect]
     Route: 048
     Dates: start: 20070505, end: 20070611
  2. BREXIN [Suspect]
     Route: 048
     Dates: start: 20070531, end: 20070101
  3. NAPROSYN [Suspect]
     Route: 048
     Dates: start: 20070505, end: 20070101
  4. COMBIVENT [Concomitant]
  5. FORADIL [Concomitant]
  6. PNEUMOREL [Concomitant]
  7. SPIRIVA [Concomitant]
  8. PARIET [Concomitant]
  9. TRINITRINE [Concomitant]
  10. NIQUITIN [Concomitant]
  11. OXAZEPAM [Concomitant]
  12. ASPIRIN [Concomitant]
     Dates: start: 20070505, end: 20070101
  13. CRESTOR [Concomitant]
  14. ASPIRIN/PRAVASTATINE [Concomitant]
  15. CYCLADOL [Concomitant]
  16. VOLTAREN [Concomitant]
  17. PREDNISONE [Concomitant]
  18. LAMALINE [Concomitant]
  19. ACTIQ [Concomitant]
  20. CODEINE PHOSPHATE/PARACETAMOL [Concomitant]
  21. SKENAN [Concomitant]

REACTIONS (3)
  - CONDITION AGGRAVATED [None]
  - DYSPNOEA [None]
  - TACHYCARDIA [None]
